FAERS Safety Report 18338882 (Version 1)
Quarter: 2020Q3

REPORT INFORMATION
  Report Type: Spontaneous
  Country: US (occurrence: US)
  Receive Date: 20200923
  Receipt Date: 20200923
  Transmission Date: 20201103
  Serious: Yes (Other)
  Sender: FDA-Public Use
  Company Number: None

PATIENT
  Age: 6 Decade
  Sex: Male

DRUGS (2)
  1. IMMUNOGLOBULINS, INTRAVENOUS [Suspect]
     Active Substance: HUMAN IMMUNOGLOBULIN G
     Indication: COVID-19
     Dates: start: 2020
  2. OSELTAMIVIR [Suspect]
     Active Substance: OSELTAMIVIR
     Indication: COVID-19
     Route: 048
     Dates: start: 2020

REACTIONS (3)
  - Acute kidney injury [None]
  - Product use issue [None]
  - Blood electrolytes abnormal [None]
